FAERS Safety Report 6204367-3 (Version None)
Quarter: 2009Q2

REPORT INFORMATION
  Report Type: 
  Country: None (occurrence: None)
  Receive Date: 20090527
  Receipt Date: 20090518
  Transmission Date: 20091009
  Serious: Yes (Death)
  Sender: FDA-Public Use
  Company Number: ES-ELI_LILLY_AND_COMPANY-ES200905004391

PATIENT
  Age: 73 Year
  Sex: Female

DRUGS (6)
  1. FORTEO [Suspect]
     Indication: OSTEOPOROSIS
     Dosage: 20 UG, UNKNOWN
     Route: 058
     Dates: start: 20081101
  2. COAPROVEL [Concomitant]
     Dosage: 300 MG, UNKNOWN
     Route: 065
  3. XUMADOL [Concomitant]
     Dosage: 10 MG, UNKNOWN
     Route: 065
  4. ANDRALGIN [Concomitant]
     Indication: DEPRESSION
     Dosage: 150 MG, UNKNOWN
     Route: 065
  5. MORPHINE [Concomitant]
     Indication: PAIN
     Dosage: UNK, UNKNOWN
     Route: 065
  6. INSULIN [Concomitant]
     Dosage: UNK, UNKNOWN
     Route: 065

REACTIONS (6)
  - ABDOMINAL DISCOMFORT [None]
  - BONE PAIN [None]
  - DEATH [None]
  - FEELING ABNORMAL [None]
  - SWELLING [None]
  - VOMITING [None]
